FAERS Safety Report 22262842 (Version 1)
Quarter: 2023Q2

REPORT INFORMATION
  Report Type: Spontaneous
  Country: TR (occurrence: TR)
  Receive Date: 20230428
  Receipt Date: 20230428
  Transmission Date: 20230722
  Serious: Yes (Other)
  Sender: FDA-Public Use
  Company Number: TR-SUN PHARMACEUTICAL INDUSTRIES LTD-2023RR-386467

PATIENT
  Age: 37 Year
  Sex: Male

DRUGS (3)
  1. CARBOPLATIN [Suspect]
     Active Substance: CARBOPLATIN
     Indication: Bladder transitional cell carcinoma
     Dosage: UNK
     Route: 065
     Dates: start: 201610
  2. GEMCITABINE [Suspect]
     Active Substance: GEMCITABINE
     Indication: Bladder transitional cell carcinoma
     Dosage: UNK
     Route: 065
     Dates: start: 201610
  3. ATEZOLIZUMAB [Concomitant]
     Active Substance: ATEZOLIZUMAB
     Indication: Metastasis
     Dosage: UNK, EVERY 3 WEEKS)
     Route: 042

REACTIONS (3)
  - Disease progression [Unknown]
  - Cough [Unknown]
  - Bone pain [Unknown]

NARRATIVE: CASE EVENT DATE: 20170301
